FAERS Safety Report 6574944-9 (Version None)
Quarter: 2010Q1

REPORT INFORMATION
  Report Type: 
  Country: None (occurrence: None)
  Receive Date: 20100209
  Receipt Date: 20100202
  Transmission Date: 20100710
  Serious: Yes (Other)
  Sender: FDA-Public Use
  Company Number: PHHY2009BR47270

PATIENT
  Sex: Male

DRUGS (2)
  1. TRILEPTAL [Suspect]
     Dosage: 300 MG, UNK
  2. ANAESTHETICS [Interacting]

REACTIONS (3)
  - DRUG INTERACTION [None]
  - SYNCOPE [None]
  - TOOTH EXTRACTION [None]
